FAERS Safety Report 22069981 (Version 1)
Quarter: 2023Q1

REPORT INFORMATION
  Report Type: Spontaneous
  Country: US (occurrence: US)
  Receive Date: 20230307
  Receipt Date: 20230307
  Transmission Date: 20230417
  Serious: No
  Sender: FDA-Public Use
  Company Number: US-AMNEAL PHARMACEUTICALS-2022-AMRX-00613

PATIENT
  Sex: Male
  Weight: 62.585 kg

DRUGS (21)
  1. RYTARY [Suspect]
     Active Substance: CARBIDOPA\LEVODOPA
     Indication: Parkinson^s disease
     Dosage: 3 CAPSULES, 3X/DAY
     Route: 048
  2. RYTARY [Suspect]
     Active Substance: CARBIDOPA\LEVODOPA
     Dosage: 3 CAPSULES, 3X/DAY AND 1 CAP AT BEDTIME
     Route: 048
     Dates: start: 20220216
  3. RYTARY [Suspect]
     Active Substance: CARBIDOPA\LEVODOPA
     Dosage: 10 CAPSULES, DAILY
     Route: 065
     Dates: start: 20220129
  4. AMLODIPINE [Concomitant]
     Active Substance: AMLODIPINE BESYLATE
     Indication: Product used for unknown indication
     Dosage: 5 MILLIGRAM, 1 /DAY
     Route: 048
  5. CLONAZEPAM [Concomitant]
     Active Substance: CLONAZEPAM
     Indication: Product used for unknown indication
     Dosage: 0.5 MILLIGRAM, 1 /DAY
     Route: 048
  6. Cyanacobalamin [Concomitant]
     Indication: Product used for unknown indication
     Dosage: 1000 MILLIGRAM, 1 /DAY
     Route: 048
  7. ENTACAPONE [Concomitant]
     Active Substance: ENTACAPONE
     Indication: Product used for unknown indication
     Dosage: 200 MILLIGRAM, 5X/DAY
     Route: 048
  8. MIRTAZAPINE [Concomitant]
     Active Substance: MIRTAZAPINE
     Indication: Product used for unknown indication
     Dosage: 30 MILLIGRAM, BEDTIME
     Route: 048
  9. SIMETHICONE (DIMETHICONE) [Concomitant]
     Active Substance: DIMETHICONE
     Indication: Flatulence
     Dosage: 80 MILLIGRAM, EVERY 6HR
  10. SIMETHICONE (DIMETHICONE) [Concomitant]
     Active Substance: DIMETHICONE
     Dosage: 125 MILLIGRAM, 1 /DAY
     Route: 048
     Dates: start: 20220216
  11. TOCOPHEROL [Concomitant]
     Active Substance: TOCOPHEROL
     Indication: Product used for unknown indication
     Dosage: 400 U, 2 /DAY
     Route: 048
  12. TOCOPHEROL [Concomitant]
     Active Substance: TOCOPHEROL
     Dosage: 400 UNK
     Dates: start: 20220216
  13. POLYTHYLENE GLYCOL [Concomitant]
     Active Substance: POLYETHYLENE GLYCOL 3350
     Indication: Product used for unknown indication
     Dosage: TAKE 17 G BY MOUTH ONCE DAILY MIX IN 4-8 OUNCES OF FLUID PRIOR TO TAKING.
     Route: 048
  14. CARBIDOPA\LEVODOPA [Concomitant]
     Active Substance: CARBIDOPA\LEVODOPA
     Indication: Product used for unknown indication
     Dosage: 50-200 MG. TAKE 1 TABLET BY MOUTH ONCE DAILY AT NIGHT.
     Route: 048
  15. CARBIDOPA\LEVODOPA [Concomitant]
     Active Substance: CARBIDOPA\LEVODOPA
     Dosage: 25-100 MG. TAKE 3 TABLETS BY MOUTH TIMES DAILY FOR 360 DAYS.
  16. CARBIDOPA\LEVODOPA [Concomitant]
     Active Substance: CARBIDOPA\LEVODOPA
     Dosage: 50-200 MG. TAKE 1 TABLET BY MOUTH ONCE DAILY AT NIGHT.
     Route: 048
  17. PREDNISONE [Concomitant]
     Active Substance: PREDNISONE
     Indication: Product used for unknown indication
     Dosage: 1 TAB EVERY 6 HOURS FOR THREE TOTAL DOSES. TAKE THEM 13 HOURS, 7 HOURS AND 1 HOUR PRIOR TO THE STUDY
     Route: 048
     Dates: end: 20220216
  18. BISACODYL [Concomitant]
     Active Substance: BISACODYL
     Indication: Constipation
  19. ACETAMINOPHEN\HYDROCODONE [Concomitant]
     Active Substance: ACETAMINOPHEN\HYDROCODONE
     Indication: Pain
     Dosage: 5-325 MG 1 TABLET, EVERY 4HR
     Route: 048
     Dates: start: 20220304, end: 20220307
  20. IBUPROFEN [Concomitant]
     Active Substance: IBUPROFEN
     Indication: Product used for unknown indication
     Dosage: 600 MILLIGRAM, 3X/DAY
     Dates: start: 20220216
  21. .ALPHA.-TOCOPHEROL [Concomitant]
     Active Substance: .ALPHA.-TOCOPHEROL
     Indication: Product used for unknown indication
     Route: 065

REACTIONS (2)
  - Therapeutic response shortened [Unknown]
  - Hallucination [Not Recovered/Not Resolved]
